FAERS Safety Report 5329809-7 (Version None)
Quarter: 2007Q2

REPORT INFORMATION
  Report Type: 
  Country: None (occurrence: None)
  Receive Date: 20070517
  Receipt Date: 20070517
  Transmission Date: 20071010
  Serious: Yes (Disabling)
  Sender: FDA-Public Use
  Company Number: None

PATIENT
  Age: 52 Year
  Sex: Female
  Weight: 67.586 kg

DRUGS (2)
  1. SERTRALINE [Suspect]
     Indication: DEPRESSION
     Dosage: 100MG 1.5MG DAILY
  2. LEVOTHYROXINE SODIUM [Concomitant]

REACTIONS (13)
  - ANGER [None]
  - ANXIETY [None]
  - CRYING [None]
  - DEPRESSION [None]
  - DRY MOUTH [None]
  - FATIGUE [None]
  - GASTRIC DISORDER [None]
  - HYPERHIDROSIS [None]
  - PHARMACEUTICAL PRODUCT COMPLAINT [None]
  - RASH [None]
  - THERAPEUTIC RESPONSE UNEXPECTED WITH DRUG SUBSTITUTION [None]
  - THINKING ABNORMAL [None]
  - TREMOR [None]
